FAERS Safety Report 9470670 (Version 2)
Quarter: 2013Q3

REPORT INFORMATION
  Report Type: Spontaneous
  Country: NL (occurrence: NL)
  Receive Date: 20130822
  Receipt Date: 20130909
  Transmission Date: 20140515
  Serious: Yes (Other)
  Sender: FDA-Public Use
  Company Number: NL-PFIZER INC-2013239420

PATIENT
  Age: 90 Year
  Sex: Female
  Weight: 65 kg

DRUGS (11)
  1. TOVIAZ [Suspect]
     Indication: HYPERTONIC BLADDER
     Dosage: 4 MG, 1X/DAY
  2. TOVIAZ [Suspect]
     Dosage: 8 MG, 1X/DAY
     Dates: end: 2013
  3. METFORMIN [Concomitant]
     Indication: DIABETES MELLITUS
     Dosage: 850 MG, 2X/DAY
     Route: 048
  4. ACENOCOUMAROL [Concomitant]
     Indication: ATRIAL FIBRILLATION
     Dosage: 2 DF, UNK
     Route: 048
  5. ATACAND [Concomitant]
     Dosage: 8 UNITS NOT REPORTED, 2X/DAY
     Route: 048
  6. ATENOLOL [Concomitant]
     Dosage: 25 UNITS NOT PROVIDED, 2X/DAY
     Route: 048
  7. FUROSEMIDE [Concomitant]
     Dosage: 40 MG, 1X/DAY
  8. FUROSEMIDE [Concomitant]
     Dosage: 20 MG, 1X/DAY
  9. NEXIUM [Concomitant]
     Dosage: 40 UNIT NOT PROVIDED, 2X/DAY
  10. CALCICHEW [Concomitant]
     Dosage: 800/400 MG ONCE DAILY
  11. AMARYL [Concomitant]
     Dosage: 1 MG, AS NEEDED ONE TO THREE DAILY

REACTIONS (1)
  - Cognitive disorder [Recovering/Resolving]
